FAERS Safety Report 7391305-3 (Version None)
Quarter: 2011Q2

REPORT INFORMATION
  Report Type: 
  Country: None (occurrence: None)
  Receive Date: 20110404
  Receipt Date: 20110325
  Transmission Date: 20111010
  Serious: Yes (Hospitalization, Other)
  Sender: FDA-Public Use
  Company Number: US-JNJFOC-20110311982

PATIENT
  Sex: Male
  Weight: 72.58 kg

DRUGS (1)
  1. INTELENCE [Suspect]
     Indication: HIV INFECTION
     Route: 048

REACTIONS (7)
  - PRODUCT QUALITY ISSUE [None]
  - CHOKING [None]
  - PRODUCT FORMULATION ISSUE [None]
  - DYSPNOEA [None]
  - TRACHEAL OBSTRUCTION [None]
  - FOREIGN BODY [None]
  - PRODUCT SOLUBILITY ABNORMAL [None]
